FAERS Safety Report 13309616 (Version 1)
Quarter: 2017Q1

REPORT INFORMATION
  Report Type: Spontaneous
  Country: US (occurrence: US)
  Receive Date: 20170308
  Receipt Date: 20170308
  Transmission Date: 20170428
  Serious: No
  Sender: FDA-Public Use
  Company Number: None

PATIENT
  Age: 26 Year
  Sex: Male

DRUGS (1)
  1. NUCALA [Suspect]
     Active Substance: MEPOLIZUMAB
     Indication: RHEUMATOID ARTHRITIS
     Dosage: Q4W
     Route: 058
     Dates: start: 20170201, end: 20170215

REACTIONS (1)
  - Retinal vascular occlusion [None]

NARRATIVE: CASE EVENT DATE: 20170225
